FAERS Safety Report 5831819-8 (Version None)
Quarter: 2008Q3

REPORT INFORMATION
  Report Type: 
  Country: None (occurrence: None)
  Receive Date: 20080731
  Receipt Date: 20080716
  Transmission Date: 20090109
  Serious: Yes (Death, Life-Threatening, Hospitalization)
  Sender: FDA-Public Use
  Company Number: 2008AL008579

PATIENT
  Age: 76 Year
  Sex: Female
  Weight: 36.2878 kg

DRUGS (1)
  1. DIGOXIN [Suspect]
     Indication: ARRHYTHMIA
     Dates: start: 20060119, end: 20080426

REACTIONS (1)
  - DRUG TOXICITY [None]
